FAERS Safety Report 7861426-7 (Version None)
Quarter: 2011Q4

REPORT INFORMATION
  Report Type: 
  Country: None (occurrence: None)
  Receive Date: 20111027
  Receipt Date: 20111025
  Transmission Date: 20120403
  Serious: Yes (Other)
  Sender: FDA-Public Use
  Company Number: US-PFIZER INC-2011260113

PATIENT
  Sex: Male
  Weight: 68.027 kg

DRUGS (3)
  1. GEODON [Suspect]
     Indication: BIPOLAR I DISORDER
     Dosage: UNK
     Route: 048
     Dates: start: 20081201, end: 20090801
  2. SYNTHROID [Concomitant]
     Indication: BLOOD THYROID STIMULATING HORMONE INCREASED
     Dosage: UNK
  3. GEODON [Suspect]
     Dosage: UNK
     Route: 048
     Dates: start: 20101201

REACTIONS (2)
  - APPARENT DEATH [None]
  - DYSTONIA [None]
